FAERS Safety Report 12077943 (Version 1)
Quarter: 2016Q1

REPORT INFORMATION
  Report Type: Spontaneous
  Country: GR (occurrence: GR)
  Receive Date: 20160215
  Receipt Date: 20160215
  Transmission Date: 20160526
  Serious: Yes (Hospitalization)
  Sender: FDA-Public Use
  Company Number: PHHY2016GR017682

PATIENT
  Age: 37 Year
  Sex: Female

DRUGS (1)
  1. AMOXICILLIN, CLAVULANATE [Suspect]
     Active Substance: AMOXICILLIN\CLAVULANATE POTASSIUM
     Indication: PERIODONTITIS
     Route: 048

REACTIONS (2)
  - Lymphadenopathy [Recovered/Resolved]
  - Acute generalised exanthematous pustulosis [Recovered/Resolved]
